FAERS Safety Report 6550384-3 (Version None)
Quarter: 2010Q1

REPORT INFORMATION
  Report Type: 
  Country: None (occurrence: None)
  Receive Date: 20100125
  Receipt Date: 20100114
  Transmission Date: 20100710
  Serious: Yes (Hospitalization)
  Sender: FDA-Public Use
  Company Number: JP-AMGEN-US387559

PATIENT
  Sex: Male
  Weight: 51 kg

DRUGS (17)
  1. ENBREL [Suspect]
     Indication: RHEUMATOID ARTHRITIS
     Route: 058
     Dates: start: 20071212, end: 20080213
  2. ENBREL [Suspect]
     Route: 058
     Dates: start: 20080220, end: 20080825
  3. ENBREL [Suspect]
     Dosage: SOLUTION FOR INJECTION 25 MG 2/WEEK
     Route: 058
     Dates: start: 20090826
  4. PREDONINE [Suspect]
     Indication: RHEUMATOID ARTHRITIS
     Dosage: UNSPECIFIED
     Route: 048
     Dates: end: 20080424
  5. PREDONINE [Suspect]
     Dosage: UNSPECIFIED
     Route: 048
     Dates: start: 20080425
  6. PREDONINE [Suspect]
     Route: 048
     Dates: start: 20081017, end: 20090723
  7. PREDONINE [Suspect]
     Route: 048
     Dates: start: 20090724
  8. FAMOTIDINE [Concomitant]
     Dosage: UNSPECIFIED
     Route: 048
  9. VOLTAREN-XR [Concomitant]
     Indication: RHEUMATOID ARTHRITIS
     Dosage: UNSPECIFIED
     Route: 048
  10. NORVASC [Concomitant]
     Dosage: UNSPECIFIED
     Route: 048
  11. ACTONEL [Concomitant]
     Dosage: UNSPECIFIED
     Route: 048
  12. FOSAMAX [Concomitant]
     Dosage: UNSPECIFIED
     Route: 048
  13. ITRIZOLE [Concomitant]
     Dosage: UNSPECIFIED
     Route: 048
  14. ADALAT [Concomitant]
     Dosage: UNSPECIFIED
     Route: 048
  15. ARTIST [Concomitant]
     Dosage: UNSPECIFIED
     Route: 048
  16. RIMATIL [Concomitant]
     Indication: RHEUMATOID ARTHRITIS
     Dosage: UNSPECIFIED
     Route: 048
  17. ISCOTIN [Concomitant]
     Dosage: UNSPECIFIED
     Route: 048

REACTIONS (1)
  - AORTIC DISSECTION RUPTURE [None]
